FAERS Safety Report 16628703 (Version 4)
Quarter: 2020Q1

REPORT INFORMATION
  Report Type: Report from Study
  Country: ES (occurrence: ES)
  Receive Date: 20190725
  Receipt Date: 20200224
  Transmission Date: 20200409
  Serious: Yes (Death)
  Sender: FDA-Public Use
  Company Number: ES-AMGEN-ESPCT2019117971

PATIENT
  Age: 67 Year
  Sex: Male
  Weight: 70 kg

DRUGS (10)
  1. METHOTREXATE [METHOTREXATE SODIUM] [Suspect]
     Active Substance: METHOTREXATE SODIUM
     Indication: RHEUMATOID ARTHRITIS
     Dosage: 7.5 MILLIGRAM, WEEKLY EVERY SATURDAY
     Route: 048
     Dates: start: 20181022, end: 20190629
  2. TORASEMIDE [Concomitant]
     Active Substance: TORSEMIDE
     Indication: HYPERTENSION
     Dosage: UNK
     Route: 048
     Dates: start: 20180120
  3. ENALAPRIL [Concomitant]
     Active Substance: ENALAPRIL
     Indication: HYPOTENSION
     Dosage: UNK
     Route: 048
     Dates: start: 20110304
  4. FERRIMANNITOL OVALBUMIN [Concomitant]
     Active Substance: IRON
     Indication: ANAEMIA
  5. FERRIMANNITOL OVALBUMIN [Concomitant]
     Active Substance: IRON
     Indication: ANAEMIA
     Dosage: UNK
     Route: 048
     Dates: start: 20190610
  6. ACENOCOUMAROL [Concomitant]
     Active Substance: ACENOCOUMAROL
     Indication: ANGIOPATHY
     Dosage: UNK
     Route: 048
     Dates: start: 20181015
  7. ETANERCEPT [Suspect]
     Active Substance: ETANERCEPT
     Indication: RHEUMATOID ARTHRITIS
     Dosage: 50 MILLIGRAM, WEEKLY EVERY FRIDAY
     Route: 058
     Dates: start: 20181106, end: 20190706
  8. OMEPRAZOLE. [Concomitant]
     Active Substance: OMEPRAZOLE
     Indication: PROPHYLAXIS
     Dosage: UNK
     Route: 048
     Dates: start: 20090908
  9. PREDNISONE. [Concomitant]
     Active Substance: PREDNISONE
     Indication: RHEUMATOID ARTHRITIS
     Dosage: UNK
     Route: 048
     Dates: start: 20181106
  10. DILIBAN [Concomitant]
     Active Substance: ACETAMINOPHEN\TRAMADOL HYDROCHLORIDE
     Indication: RHEUMATOID ARTHRITIS
     Dosage: UNK
     Route: 048
     Dates: start: 20181106

REACTIONS (2)
  - Septic shock [Fatal]
  - Pneumonia [Fatal]

NARRATIVE: CASE EVENT DATE: 20190610
